FAERS Safety Report 15907820 (Version 1)
Quarter: 2019Q1

REPORT INFORMATION
  Report Type: Spontaneous
  Country: US (occurrence: US)
  Receive Date: 20190111
  Receipt Date: 20190111
  Transmission Date: 20190417
  Serious: No
  Sender: FDA-Public Use
  Company Number: None

PATIENT
  Age: 54 Year
  Sex: Male

DRUGS (1)
  1. TACROLIMUS CAP 1MG [Suspect]
     Active Substance: TACROLIMUS
     Dates: start: 19931001

REACTIONS (5)
  - Joint stiffness [None]
  - Organ failure [None]
  - Bone loss [None]
  - Transplant [None]
  - Weight increased [None]

NARRATIVE: CASE EVENT DATE: 20190101
